FAERS Safety Report 7577700-8 (Version None)
Quarter: 2011Q2

REPORT INFORMATION
  Report Type: 
  Country: None (occurrence: None)
  Receive Date: 20110621
  Receipt Date: 20110606
  Transmission Date: 20111010
  Serious: Yes (Death, Other)
  Sender: FDA-Public Use
  Company Number: 2011MA006877

PATIENT
  Age: 30 Year
  Sex: Male

DRUGS (10)
  1. SODIUM OXYBATENUK (NO PREF. NAME) [Suspect]
  2. CODEINE [Concomitant]
  3. AMPHETAMINE (NO PREF. NAME) [Suspect]
  4. MORPHINE [Concomitant]
  5. CARISOPRODOL [Concomitant]
  6. NANDROLONE (NANDROLONE) [Suspect]
  7. ZOLPIDEM [Concomitant]
  8. ACETAMINOPHEN [Concomitant]
  9. ALPRAZOLAM [Suspect]
  10. SERTRALINE HYDROCHLORIDE [Concomitant]

REACTIONS (2)
  - TOXICITY TO VARIOUS AGENTS [None]
  - OVERDOSE [None]
